FAERS Safety Report 7424509-1 (Version None)
Quarter: 2011Q2

REPORT INFORMATION
  Report Type: 
  Country: None (occurrence: None)
  Receive Date: 20110419
  Receipt Date: 20110418
  Transmission Date: 20111010
  Serious: No
  Sender: FDA-Public Use
  Company Number: US-B.I. PHARMACEUTICALS,INC./RIDGEFIELD-2011-BP-10954BP

PATIENT
  Sex: Female

DRUGS (1)
  1. PRADAXA [Suspect]
     Indication: ATRIAL FIBRILLATION
     Dosage: 300 MG
     Route: 048
     Dates: start: 20110301

REACTIONS (9)
  - WHEEZING [None]
  - ANGINA PECTORIS [None]
  - CHEST DISCOMFORT [None]
  - DIZZINESS [None]
  - ABDOMINAL PAIN [None]
  - ARTHRALGIA [None]
  - ABDOMINAL PAIN UPPER [None]
  - ASTHENIA [None]
  - JOINT STIFFNESS [None]
